FAERS Safety Report 8476023 (Version 2)
Quarter: 2014Q1

REPORT INFORMATION
  Report Type: Report from Study
  Country: US (occurrence: US)
  Receive Date: 20120326
  Receipt Date: 20140128
  Transmission Date: 20141002
  Serious: Yes (Death, Other)
  Sender: FDA-Public Use
  Company Number: US-CELGENEUS-163-50794-12032485

PATIENT
  Sex: 0

DRUGS (5)
  1. VIDAZA [Suspect]
     Indication: ACUTE MYELOID LEUKAEMIA
     Dosage: 75 MILLIGRAM/SQ. METER
     Route: 041
  2. VIDAZA [Suspect]
     Dosage: 75 MILLIGRAM/SQ. METER
     Route: 058
  3. VORINOSTAT [Suspect]
     Indication: ACUTE MYELOID LEUKAEMIA
     Dosage: 200 MILLIGRAM
     Route: 065
  4. VORINOSTAT [Suspect]
     Dosage: 300-400MG
     Route: 065
  5. GEMTUZUMAB OZOGAMICIN [Suspect]
     Indication: ACUTE MYELOID LEUKAEMIA
     Route: 041

REACTIONS (29)
  - Death [Fatal]
  - Hypoalbuminaemia [Unknown]
  - Hepatitis viral [Unknown]
  - Myocardial infarction [Unknown]
  - Left ventricular dysfunction [Unknown]
  - Acidosis [Unknown]
  - Aspiration [Unknown]
  - Pulmonary hypertension [Unknown]
  - Embolism [Unknown]
  - Blood alkaline phosphatase increased [Unknown]
  - Infusion related reaction [Unknown]
  - Hyponatraemia [Unknown]
  - Hypophosphataemia [Unknown]
  - Sinus tachycardia [Unknown]
  - Pancytopenia [Unknown]
  - Infection [Unknown]
  - Renal failure acute [Unknown]
  - Device related infection [Unknown]
  - Lung infection [Unknown]
  - Sinusitis [Unknown]
  - Upper respiratory tract infection [Unknown]
  - Abdominal pain [Unknown]
  - Gastric haemorrhage [Unknown]
  - Fatigue [Unknown]
  - Alanine aminotransferase increased [Unknown]
  - Weight decreased [Unknown]
  - Hypertension [Unknown]
  - Hypersensitivity [Unknown]
  - Cough [Unknown]
